FAERS Safety Report 12448123 (Version 1)
Quarter: 2016Q2

REPORT INFORMATION
  Report Type: Spontaneous
  Country: US (occurrence: US)
  Receive Date: 20160608
  Receipt Date: 20160608
  Transmission Date: 20160815
  Serious: Yes (Death, Other)
  Sender: FDA-Public Use
  Company Number: US-ALEXION PHARMACEUTICALS INC-A201604003

PATIENT
  Sex: Male

DRUGS (1)
  1. SOLIRIS [Suspect]
     Active Substance: ECULIZUMAB
     Indication: PRODUCT USED FOR UNKNOWN INDICATION
     Dosage: UNK
     Route: 042
     Dates: start: 20160519

REACTIONS (10)
  - Dyspnoea [Unknown]
  - Heart rate increased [Recovered/Resolved]
  - Death [Fatal]
  - Graft versus host disease [Unknown]
  - Hypotension [Unknown]
  - Cytomegalovirus infection [Unknown]
  - Carbon dioxide increased [Recovered/Resolved]
  - Ill-defined disorder [Unknown]
  - Occult blood [Unknown]
  - Sedation [Unknown]

NARRATIVE: CASE EVENT DATE: 201605
